FAERS Safety Report 16696119 (Version 1)
Quarter: 2019Q3

REPORT INFORMATION
  Report Type: Report from Study
  Country: US (occurrence: US)
  Receive Date: 20190813
  Receipt Date: 20190813
  Transmission Date: 20191004
  Serious: Yes (Other)
  Sender: FDA-Public Use
  Company Number: US-AUROBINDO-AUR-APL-2019-053274

PATIENT

DRUGS (9)
  1. VANCOMYCIN [Suspect]
     Active Substance: VANCOMYCIN
     Indication: MYOSITIS
  2. HYDROXYZINE [Suspect]
     Active Substance: HYDROXYZINE HYDROCHLORIDE
     Indication: PHLEBITIS
     Dosage: UNK
     Route: 065
  3. IBUPROFEN. [Suspect]
     Active Substance: IBUPROFEN
     Indication: MYOSITIS
  4. IBUPROFEN. [Suspect]
     Active Substance: IBUPROFEN
     Indication: PHLEBITIS
     Dosage: UNK
     Route: 065
  5. IBUPROFEN. [Suspect]
     Active Substance: IBUPROFEN
     Indication: STAPHYLOCOCCAL BACTERAEMIA
  6. HYDROXYZINE [Suspect]
     Active Substance: HYDROXYZINE HYDROCHLORIDE
     Indication: STAPHYLOCOCCAL BACTERAEMIA
  7. VANCOMYCIN [Suspect]
     Active Substance: VANCOMYCIN
     Indication: PHLEBITIS
     Dosage: UNK
     Route: 065
  8. HYDROXYZINE [Suspect]
     Active Substance: HYDROXYZINE HYDROCHLORIDE
     Indication: MYOSITIS
  9. VANCOMYCIN [Suspect]
     Active Substance: VANCOMYCIN
     Indication: STAPHYLOCOCCAL BACTERAEMIA

REACTIONS (1)
  - Drug reaction with eosinophilia and systemic symptoms [Unknown]
